FAERS Safety Report 25257401 (Version 1)
Quarter: 2025Q2

REPORT INFORMATION
  Report Type: Spontaneous
  Country: TN (occurrence: TN)
  Receive Date: 20250430
  Receipt Date: 20250430
  Transmission Date: 20250716
  Serious: Yes (Other)
  Sender: UCB
  Company Number: TN-UCBSA-2025024128

PATIENT
  Age: 59 Year
  Sex: Female
  Weight: 58 kg

DRUGS (1)
  1. CERTOLIZUMAB PEGOL [Suspect]
     Active Substance: CERTOLIZUMAB PEGOL
     Indication: Rheumatoid arthritis
     Dosage: 1 DOSAGE FORM, EV 2 WEEKS(QOW)
     Dates: start: 20220210, end: 20250421

REACTIONS (2)
  - Central nervous system vasculitis [Not Recovered/Not Resolved]
  - Monoparesis [Unknown]

NARRATIVE: CASE EVENT DATE: 20240101
